FAERS Safety Report 5213235-5 (Version None)
Quarter: 2007Q1

REPORT INFORMATION
  Report Type: 
  Country: None (occurrence: None)
  Receive Date: 20070119
  Receipt Date: 20070108
  Transmission Date: 20070707
  Serious: Yes (Other)
  Sender: FDA-Public Use
  Company Number: GB-NOVOPROD-258886

PATIENT
  Sex: Male
  Weight: 64.7 kg

DRUGS (10)
  1. NOVORAPID FLEXPEN [Suspect]
     Indication: INSULIN-REQUIRING TYPE II DIABETES MELLITUS
     Dosage: 28 IU, QD
     Route: 058
     Dates: start: 20060508
  2. ASPIRIN [Concomitant]
     Dosage: 75 MG, QD
     Route: 048
     Dates: start: 20060406
  3. GLICLAZIDE [Concomitant]
     Dosage: 320 MG, QD
     Route: 048
     Dates: start: 19980828
  4. GLUCOFORMIN [Concomitant]
     Dosage: 2550 MG, QD
     Route: 048
     Dates: start: 20020821
  5. RAMIPRIL [Concomitant]
     Dosage: 1.25 MG, QD
     Route: 048
     Dates: start: 20060308
  6. SIMVASTATIN [Concomitant]
     Dosage: 10 MG, QD
     Route: 048
     Dates: start: 20060406
  7. OMEGA 3 FISH OIL [Concomitant]
     Dosage: 650 MG, QD
     Route: 048
     Dates: start: 20060515
  8. CHONDNAL [Concomitant]
     Dosage: 3 MG, QD
     Route: 048
     Dates: start: 20060201
  9. VITAMIN C                          /00008001/ [Concomitant]
     Dosage: 500 MG, QD
     Route: 048
     Dates: start: 19960101
  10. PARACETAMOL [Concomitant]
     Dosage: 1 G, QD
     Dates: start: 20060803

REACTIONS (3)
  - FACE INJURY [None]
  - FALL [None]
  - MOUTH INJURY [None]
